FAERS Safety Report 13717468 (Version 1)
Quarter: 2017Q3

REPORT INFORMATION
  Report Type: Spontaneous
  Country: US (occurrence: US)
  Receive Date: 20170705
  Receipt Date: 20170705
  Transmission Date: 20171127
  Serious: Yes (Hospitalization, Other)
  Sender: FDA-Public Use
  Company Number: None

PATIENT
  Age: 65 Year
  Sex: Female
  Weight: 65.83 kg

DRUGS (28)
  1. HYOSCYAMINE. [Suspect]
     Active Substance: HYOSCYAMINE
     Indication: IRRITABLE BOWEL SYNDROME
     Route: 048
     Dates: start: 20160816, end: 20160831
  2. CYCLOBENZAPRINE. [Concomitant]
     Active Substance: CYCLOBENZAPRINE
  3. LEVOTHYROXINE. [Concomitant]
     Active Substance: LEVOTHYROXINE
  4. PILOCARPINE. [Concomitant]
     Active Substance: PILOCARPINE
  5. DIAZEPAM. [Concomitant]
     Active Substance: DIAZEPAM
  6. MULTI VITAMIN + MINERALS [Concomitant]
  7. FUROSEMIDE. [Concomitant]
     Active Substance: FUROSEMIDE
  8. TYLENOL WITH CODEINE [Concomitant]
     Active Substance: ACETAMINOPHEN\CODEINE PHOSPHATE
  9. LISONOPRIL [Concomitant]
  10. NORVASC [Concomitant]
     Active Substance: AMLODIPINE BESYLATE
  11. DICYCOMINE [Concomitant]
  12. FLONASE [Concomitant]
     Active Substance: FLUTICASONE PROPIONATE
  13. KETEROLAC [Concomitant]
  14. BUPROPION. [Concomitant]
     Active Substance: BUPROPION
  15. PREDNISONE. [Concomitant]
     Active Substance: PREDNISONE
  16. DOCUSATE SODIUM. [Concomitant]
     Active Substance: DOCUSATE SODIUM
  17. ALBUTEROL. [Concomitant]
     Active Substance: ALBUTEROL
  18. ASMANEX [Concomitant]
     Active Substance: MOMETASONE FUROATE
  19. CLONIDINE. [Concomitant]
     Active Substance: CLONIDINE
  20. SEREVENT DISKUS [Concomitant]
     Active Substance: SALMETEROL XINAFOATE
  21. METROPOLOL [Concomitant]
     Active Substance: METOPROLOL
  22. PROZAC [Concomitant]
     Active Substance: FLUOXETINE HYDROCHLORIDE
  23. ONDANSETRON [Concomitant]
     Active Substance: ONDANSETRON
  24. HYOSCYAMINE. [Suspect]
     Active Substance: HYOSCYAMINE
     Indication: PRODUCT USED FOR UNKNOWN INDICATION
     Route: 048
     Dates: start: 20160816, end: 20160831
  25. KCL [Concomitant]
     Active Substance: POTASSIUM CHLORIDE
  26. SUCRALFATE. [Concomitant]
     Active Substance: SUCRALFATE
  27. PREVACID [Concomitant]
     Active Substance: LANSOPRAZOLE
  28. PRILOSEC [Concomitant]
     Active Substance: OMEPRAZOLE MAGNESIUM

REACTIONS (3)
  - Seizure [None]
  - Psychotic disorder [None]
  - Balance disorder [None]

NARRATIVE: CASE EVENT DATE: 201607
